FAERS Safety Report 26061476 (Version 2)
Quarter: 2025Q4

REPORT INFORMATION
  Report Type: Spontaneous
  Country: US (occurrence: US)
  Receive Date: 20251118
  Receipt Date: 20251121
  Transmission Date: 20260117
  Serious: No
  Sender: NOVO NORDISK
  Company Number: US-NOVOPROD-1460396

PATIENT
  Age: 74 Year
  Sex: Female

DRUGS (2)
  1. INSULIN ASPART [Suspect]
     Active Substance: INSULIN ASPART
     Indication: Type 2 diabetes mellitus
     Dosage: MAX 16 UNITS EVERY TWO OR THREE DAYS; 4-6UNITS EACH MEAL; 16 UNITS FOR DINNER OR A LARGER MEAL
     Route: 058
     Dates: start: 20250325
  2. INSULIN DEGLUDEC [Suspect]
     Active Substance: INSULIN DEGLUDEC
     Indication: Type 2 diabetes mellitus
     Dosage: 72 U, QD
     Route: 058
     Dates: start: 20250401

REACTIONS (7)
  - Hyperhidrosis [Unknown]
  - Pyrexia [Unknown]
  - Decreased appetite [Unknown]
  - Diarrhoea [Recovered/Resolved]
  - Headache [Unknown]
  - Blood glucose increased [Not Recovered/Not Resolved]
  - Drug ineffective [Not Recovered/Not Resolved]

NARRATIVE: CASE EVENT DATE: 20250327
